FAERS Safety Report 9454271 (Version 2)
Quarter: 2013Q3

REPORT INFORMATION
  Report Type: Spontaneous
  Country: US (occurrence: US)
  Receive Date: 20130812
  Receipt Date: 20130816
  Transmission Date: 20140515
  Serious: No
  Sender: FDA-Public Use
  Company Number: US-009507513-1308USA005070

PATIENT
  Sex: Male

DRUGS (2)
  1. AFRIN [Suspect]
     Indication: RESPIRATORY TRACT CONGESTION
     Dosage: UNK, UNKNOWN
     Route: 048
  2. AFRIN [Suspect]
     Indication: MEDICAL OBSERVATION

REACTIONS (1)
  - Drug effect delayed [Unknown]
